FAERS Safety Report 14854321 (Version 1)
Quarter: 2018Q2

REPORT INFORMATION
  Report Type: Spontaneous
  Country: US (occurrence: US)
  Receive Date: 20180420
  Receipt Date: 20180420
  Transmission Date: 20180711
  Serious: Yes (Death, Life-Threatening, Hospitalization, Other)
  Sender: FDA-Public Use
  Company Number: None

PATIENT
  Age: 22 Year
  Sex: Female
  Weight: 63.5 kg

DRUGS (2)
  1. OMNISCAN [Suspect]
     Active Substance: GADODIAMIDE
     Indication: SCAN WITH CONTRAST
     Route: 042
     Dates: start: 20180316, end: 20180316
  2. OMNISCAN [Suspect]
     Active Substance: GADODIAMIDE
     Indication: NUCLEAR MAGNETIC RESONANCE IMAGING BRAIN
     Route: 042
     Dates: start: 20180316, end: 20180316

REACTIONS (10)
  - Hypersensitivity [None]
  - Brain death [None]
  - Seizure [None]
  - Brain injury [None]
  - Brain oedema [None]
  - Brain herniation [None]
  - Cardiac arrest [None]
  - Pulse absent [None]
  - Respiratory arrest [None]
  - Anoxia [None]

NARRATIVE: CASE EVENT DATE: 20180316
